FAERS Safety Report 19690186 (Version 1)
Quarter: 2021Q3

REPORT INFORMATION
  Report Type: Spontaneous
  Country: US (occurrence: US)
  Receive Date: 20210812
  Receipt Date: 20210812
  Transmission Date: 20211014
  Serious: No
  Sender: FDA-Public Use
  Company Number: US-CELGENEUS-USA-20210801186

PATIENT
  Sex: Female
  Weight: 102.15 kg

DRUGS (1)
  1. REVLIMID [Suspect]
     Active Substance: LENALIDOMIDE
     Indication: PLASMA CELL MYELOMA
     Dosage: 25 MILLIGRAM
     Route: 048
     Dates: start: 202103

REACTIONS (12)
  - Weight decreased [Unknown]
  - Blood insulin abnormal [Unknown]
  - Eating disorder [Unknown]
  - Abdominal pain upper [Unknown]
  - Vomiting [Unknown]
  - Taste disorder [Unknown]
  - Nausea [Unknown]
  - Fall [Unknown]
  - Diarrhoea [Unknown]
  - Hypotension [Unknown]
  - Thirst [Unknown]
  - Fatigue [Unknown]

NARRATIVE: CASE EVENT DATE: 2021
